FAERS Safety Report 12677515 (Version 1)
Quarter: 2016Q3

REPORT INFORMATION
  Report Type: Spontaneous
  Country: CN (occurrence: CN)
  Receive Date: 20160823
  Receipt Date: 20160823
  Transmission Date: 20161109
  Serious: Yes (Death)
  Sender: FDA-Public Use
  Company Number: CN-PFIZER INC-2015111762

PATIENT
  Age: 69 Year
  Sex: Male

DRUGS (1)
  1. SUTENT [Suspect]
     Active Substance: SUNITINIB MALATE
     Indication: RENAL CELL CARCINOMA
     Dosage: UNK

REACTIONS (6)
  - White blood cell count decreased [Unknown]
  - White blood cell count increased [Unknown]
  - Platelet count decreased [Unknown]
  - Hypertension [Unknown]
  - Death [Fatal]
  - Asthenia [Unknown]
